FAERS Safety Report 7988873-7 (Version None)
Quarter: 2011Q4

REPORT INFORMATION
  Report Type: 
  Country: None (occurrence: None)
  Receive Date: 20111215
  Receipt Date: 20111215
  Transmission Date: 20120403
  Serious: Yes (Other)
  Sender: FDA-Public Use
  Company Number: None

PATIENT
  Sex: Male
  Weight: 95.2554 kg

DRUGS (4)
  1. LISINOPRIL [Concomitant]
  2. METHOTREXATE [Concomitant]
  3. TERAZOSIN HCL [Concomitant]
  4. ALENDRONATE SODIUM [Suspect]
     Indication: BONE LOSS
     Dosage: 70MG 1X/WEEK ORALLY
     Route: 048
     Dates: end: 20111030

REACTIONS (1)
  - RETINAL HAEMORRHAGE [None]
